FAERS Safety Report 22107426 (Version 4)
Quarter: 2023Q2

REPORT INFORMATION
  Report Type: Spontaneous
  Country: BR (occurrence: BR)
  Receive Date: 20230317
  Receipt Date: 20230428
  Transmission Date: 20230722
  Serious: Yes (Other)
  Sender: FDA-Public Use
  Company Number: BR-009507513-2303BRA005061

PATIENT
  Age: 54 Year
  Sex: Female

DRUGS (9)
  1. KEYTRUDA [Suspect]
     Active Substance: PEMBROLIZUMAB
     Indication: Triple negative breast cancer
     Dosage: 200 MILLIGRAM, EACH 21 DAYS (Q3W),8 DOSES IN NEOADJUVANT, ACCORDING TO THE LEAFLET OF PEMBRO KEYNOTE
     Route: 042
     Dates: start: 20221108
  2. KEYTRUDA [Suspect]
     Active Substance: PEMBROLIZUMAB
     Dosage: PATIENT WAS ON NEOADJUVANT THERAPY WITH ^TAXANE^, ^PLATIN^ AND PEMBROLIZUMAB
     Dates: start: 20230202
  3. TAXOL [Suspect]
     Active Substance: PACLITAXEL
     Indication: Triple negative breast cancer
     Dosage: 80 MG/M2 EACH WEEK (QW), 12 CYCLES
     Route: 042
     Dates: start: 20221108
  4. TAXOL [Suspect]
     Active Substance: PACLITAXEL
     Dosage: ON NEOADJUVANT THERAPY WITH ^TAXANE^, ^PLATIN^ AND PEMBROLIZUMAB
     Dates: start: 20230202
  5. CARBOPLATIN [Suspect]
     Active Substance: CARBOPLATIN
     Indication: Triple negative breast cancer
     Dosage: AUC 1,5 IN 12 CYCLES (REPORTED AS 12CYCLES),WEEKLY (QW)
     Route: 042
     Dates: start: 20221108
  6. CARBOPLATIN [Suspect]
     Active Substance: CARBOPLATIN
     Dosage: PATIENT WAS ON NEOADJUVANT THERAPY WITH ^TAXANE^, ^PLATIN^ AND PEMBROLIZUMAB
     Dates: start: 20230202
  7. CARBOPLATIN [Suspect]
     Active Substance: CARBOPLATIN
     Dosage: FOLLOWED BY ADRIAMYCIN AND CARBOPLATIN (REPORTED AS AC) INTRAVENOUS
  8. ADRIAMYCIN [Suspect]
     Active Substance: DOXORUBICIN HYDROCHLORIDE
     Indication: Triple negative breast cancer
     Dosage: 60 MILLIGRAM/SQ. METER
     Route: 042
     Dates: start: 20221108
  9. CYCLOPHOSPHAMIDE [Suspect]
     Active Substance: CYCLOPHOSPHAMIDE
     Indication: Triple negative breast cancer
     Dosage: 600 MILLIGRAM/SQ. METER
     Dates: start: 20221108

REACTIONS (1)
  - Lymphadenopathy [Unknown]

NARRATIVE: CASE EVENT DATE: 20221114
